FAERS Safety Report 4428209-1 (Version None)
Quarter: 2004Q3

REPORT INFORMATION
  Report Type: 
  Country: None (occurrence: None)
  Receive Date: 20040726
  Receipt Date: 20040316
  Transmission Date: 20050211
  Serious: No
  Sender: FDA-Public Use
  Company Number: USA040362178

PATIENT
  Age: 46 Year
  Sex: Female
  Weight: 84 kg

DRUGS (15)
  1. FORTEO [Suspect]
     Indication: OSTEOPOROSIS
     Dosage: 20 UG/ 1 DAY
     Dates: start: 20040314
  2. AMARYL [Concomitant]
  3. LIPITOR [Concomitant]
  4. TRICOR [Concomitant]
  5. FULVESTRANT [Concomitant]
  6. LISINOPRIL [Concomitant]
  7. SYNTHROID [Concomitant]
  8. PREDNISONE [Concomitant]
  9. METHOTREXATE [Concomitant]
  10. FOLIC ACID [Concomitant]
  11. PREVACID [Concomitant]
  12. PREMARIN [Concomitant]
  13. NEURONTIN [Concomitant]
  14. BUMETANIDE [Concomitant]
  15. CALCIUM CITRATE WITH VITAMIN D [Concomitant]

REACTIONS (1)
  - INJECTION SITE ERYTHEMA [None]
